FAERS Safety Report 5387554-6 (Version None)
Quarter: 2007Q3

REPORT INFORMATION
  Report Type: 
  Country: None (occurrence: None)
  Receive Date: 20070711
  Receipt Date: 20070711
  Transmission Date: 20080115
  Serious: Yes (Hospitalization)
  Sender: FDA-Public Use
  Company Number: None

PATIENT
  Age: 91 Year
  Sex: Female

DRUGS (1)
  1. ZYVOX [Suspect]
     Indication: PNEUMONIA STAPHYLOCOCCAL
     Dosage: 600 MG BID IV
     Route: 042
     Dates: start: 20070704, end: 20070709

REACTIONS (7)
  - ANAEMIA [None]
  - CARCINOEMBRYONIC ANTIGEN INCREASED [None]
  - DIVERTICULITIS [None]
  - FUNGAEMIA [None]
  - FUNGAL INFECTION [None]
  - GASTRITIS [None]
  - PANCYTOPENIA [None]
